FAERS Safety Report 11553000 (Version 3)
Quarter: 2015Q4

REPORT INFORMATION
  Report Type: Spontaneous
  Country: US (occurrence: US)
  Receive Date: 20150925
  Receipt Date: 20151204
  Transmission Date: 20160304
  Serious: Yes (Other)
  Sender: FDA-Public Use
  Company Number: US-ACTAVIS-2015-20042

PATIENT
  Age: 37 Year
  Sex: Male

DRUGS (2)
  1. SOTALOL (WATSON LABORATORIES) [Suspect]
     Active Substance: SOTALOL
     Indication: PRODUCT USED FOR UNKNOWN INDICATION
     Dosage: UNK
     Route: 065
  2. AMIODARONE (UNKNOWN) [Suspect]
     Active Substance: AMIODARONE
     Indication: ATRIAL FIBRILLATION
     Dosage: 200 MG, BID
     Route: 065

REACTIONS (2)
  - Electrocardiogram QT prolonged [Unknown]
  - Lupus-like syndrome [Recovered/Resolved with Sequelae]
